FAERS Safety Report 25174328 (Version 1)
Quarter: 2025Q2

REPORT INFORMATION
  Report Type: Spontaneous
  Country: US (occurrence: None)
  Receive Date: 20250406
  Receipt Date: 20250406
  Transmission Date: 20250716
  Serious: No
  Sender: FDA-CTU
  Company Number: None

PATIENT
  Age: 19 Year
  Sex: Female
  Weight: 65.77 kg

DRUGS (3)
  1. MIRENA [Suspect]
     Active Substance: LEVONORGESTREL
  2. IBUPROFEN [Concomitant]
     Active Substance: IBUPROFEN
  3. MAGNESIUM [Concomitant]
     Active Substance: MAGNESIUM

REACTIONS (7)
  - Dyspepsia [None]
  - Pain [None]
  - Abdominal distension [None]
  - Eructation [None]
  - Vomiting [None]
  - Constipation [None]
  - Flatulence [None]
